FAERS Safety Report 17486116 (Version 4)
Quarter: 2022Q3

REPORT INFORMATION
  Report Type: Other
  Country: JP (occurrence: JP)
  Receive Date: 20200303
  Receipt Date: 20220714
  Transmission Date: 20221027
  Serious: Yes (Other)
  Sender: FDA-Public Use
  Company Number: JP-CHUGAI-A2020012055ROCHE

PATIENT
  Age: 70 Year
  Sex: Female
  Weight: 63 kg

DRUGS (19)
  1. OBINUTUZUMAB [Suspect]
     Active Substance: OBINUTUZUMAB
     Indication: Follicular lymphoma
     Dosage: 1000 MG ONCE IN 1 DAY
     Route: 041
     Dates: start: 20190723, end: 20190723
  2. OBINUTUZUMAB [Suspect]
     Active Substance: OBINUTUZUMAB
     Dosage: 1000 MG ONCE IN 1 DAY
     Route: 041
     Dates: start: 20190730, end: 20190730
  3. OBINUTUZUMAB [Suspect]
     Active Substance: OBINUTUZUMAB
     Dosage: 1000 MG ONCE IN 1 DAY
     Route: 041
     Dates: start: 20190806, end: 20190806
  4. OBINUTUZUMAB [Suspect]
     Active Substance: OBINUTUZUMAB
     Dosage: 1000 MG ONCE IN 1 DAY
     Route: 041
     Dates: start: 20190912, end: 20190912
  5. OBINUTUZUMAB [Suspect]
     Active Substance: OBINUTUZUMAB
     Dosage: 1000 MG ONCE IN 1 DAY
     Route: 041
     Dates: start: 20191107, end: 20191107
  6. OBINUTUZUMAB [Suspect]
     Active Substance: OBINUTUZUMAB
     Dosage: 1000 MG ONCE IN 1 DAY
     Route: 041
     Dates: start: 20200109, end: 20200109
  7. OBINUTUZUMAB [Suspect]
     Active Substance: OBINUTUZUMAB
     Dosage: 1000 MG, QD
     Route: 041
     Dates: start: 20200409, end: 20200409
  8. OBINUTUZUMAB [Suspect]
     Active Substance: OBINUTUZUMAB
     Dosage: 1000 MG, QD
     Route: 041
     Dates: start: 20200604, end: 20200604
  9. OBINUTUZUMAB [Suspect]
     Active Substance: OBINUTUZUMAB
     Dosage: 1000 MG, QD
     Route: 041
     Dates: start: 20200806, end: 20200806
  10. OBINUTUZUMAB [Suspect]
     Active Substance: OBINUTUZUMAB
     Dosage: 1000 MG, QD
     Route: 041
     Dates: start: 20201008, end: 20201008
  11. OBINUTUZUMAB [Suspect]
     Active Substance: OBINUTUZUMAB
     Dosage: 1000 MG, QD
     Route: 041
     Dates: start: 20201203, end: 20201203
  12. OBINUTUZUMAB [Suspect]
     Active Substance: OBINUTUZUMAB
     Dosage: 1000 MG, QD
     Route: 041
     Dates: start: 20210204, end: 20210204
  13. OBINUTUZUMAB [Suspect]
     Active Substance: OBINUTUZUMAB
     Dosage: 1000 MG, QD
     Route: 041
     Dates: start: 20210408, end: 20210408
  14. OBINUTUZUMAB [Suspect]
     Active Substance: OBINUTUZUMAB
     Dosage: 1000 MG, QD
     Route: 041
     Dates: start: 20210715, end: 20210715
  15. OBINUTUZUMAB [Suspect]
     Active Substance: OBINUTUZUMAB
     Dosage: 1000 MG, QD
     Route: 041
     Dates: start: 20210909, end: 20210909
  16. OBINUTUZUMAB [Suspect]
     Active Substance: OBINUTUZUMAB
     Dosage: 1000 MG, QD
     Route: 041
     Dates: start: 20211104, end: 20211104
  17. OBINUTUZUMAB [Suspect]
     Active Substance: OBINUTUZUMAB
     Dosage: 1000 MG, QD
     Route: 041
     Dates: start: 20220106, end: 20220106
  18. OBINUTUZUMAB [Suspect]
     Active Substance: OBINUTUZUMAB
     Route: 041
     Dates: start: 20220310, end: 20220310
  19. BENDAMUSTINE HYDROCHLORIDE [Suspect]
     Active Substance: BENDAMUSTINE HYDROCHLORIDE
     Indication: Follicular lymphoma
     Dosage: DOSAGE IS UNCERTAIN.?MOST RECENT DOSE OF BENDAMUSTINE HYDROCHLORIDE: 10/JAN/2020
     Route: 041
     Dates: start: 20190723

REACTIONS (1)
  - Cytopenia [Unknown]
